FAERS Safety Report 8477584-X (Version None)
Quarter: 2012Q2

REPORT INFORMATION
  Report Type: 
  Country: None (occurrence: None)
  Receive Date: 20120629
  Receipt Date: 20120619
  Transmission Date: 20120825
  Serious: Yes (Other)
  Sender: FDA-Public Use
  Company Number: BE-CELGENEUS-013-C5013-11064001

PATIENT
  Sex: Male
  Weight: 75 kg

DRUGS (11)
  1. VISKALDIX [Concomitant]
     Indication: PROPHYLAXIS
     Dosage: 10 MILLIGRAM
     Route: 048
     Dates: start: 19710101
  2. PREDNISOLONE [Concomitant]
     Indication: PAIN
     Dosage: 10 MILLIGRAM
     Route: 048
     Dates: start: 20080301
  3. LEVOCETIRIZINE DIHYDROCHLORIDE [Concomitant]
     Indication: PRURITUS
  4. LENALIDOMIDE [Suspect]
     Dosage: 5 MILLIGRAM
     Route: 048
     Dates: start: 20110329, end: 20110607
  5. DURAGESIC-100 [Concomitant]
     Indication: PAIN
     Dosage: 2400 MICROGRAM
     Route: 062
     Dates: start: 20110304
  6. ALLOPURINOL [Concomitant]
     Indication: PROPHYLAXIS
     Dosage: 300 MILLIGRAM
     Route: 048
     Dates: start: 20100301
  7. ATOPICALM [Concomitant]
     Dosage: 250 MILLIGRAM/MILLILITERS
     Route: 062
     Dates: start: 20110426
  8. ATOPICALM [Concomitant]
     Indication: PRURITUS
  9. LEVOCETIRIZINE DIHYDROCHLORIDE [Concomitant]
     Dosage: 5 MILLIGRAM
     Route: 048
     Dates: start: 20110419, end: 20110425
  10. CORTISONE ACETATE [Concomitant]
     Indication: PRURITUS
  11. CORTISONE ACETATE [Concomitant]
     Dosage: 30 MILLIGRAM/MILLILITERS
     Route: 062
     Dates: start: 20110426

REACTIONS (1)
  - NON-SMALL CELL LUNG CANCER [None]
